FAERS Safety Report 8860396 (Version 2)
Quarter: 2013Q1

REPORT INFORMATION
  Report Type: Spontaneous
  Country: US (occurrence: US)
  Receive Date: 20121025
  Receipt Date: 20130215
  Transmission Date: 20140127
  Serious: Yes (Hospitalization)
  Sender: FDA-Public Use
  Company Number: US-JNJFOC-20121007586

PATIENT
  Sex: Female
  Weight: 42.64 kg

DRUGS (12)
  1. FENTANYL TRANSDERMAL SYSTEM [Suspect]
     Indication: MUSCLE SPASMS
     Route: 062
     Dates: start: 2005, end: 2005
  2. FENTANYL TRANSDERMAL SYSTEM [Suspect]
     Indication: PAIN
     Route: 062
     Dates: start: 2005, end: 2005
  3. DURAGESIC [Suspect]
     Indication: MUSCLE SPASMS
     Dosage: 50 UG/HR X 3 PATCHES
     Route: 062
     Dates: start: 2009
  4. DURAGESIC [Suspect]
     Indication: MUSCLE SPASMS
     Route: 062
  5. DURAGESIC [Suspect]
     Indication: MUSCLE SPASMS
     Route: 062
     Dates: start: 2005
  6. DURAGESIC [Suspect]
     Indication: MUSCLE SPASMS
     Route: 062
  7. DURAGESIC [Suspect]
     Indication: MUSCLE SPASMS
     Route: 062
     Dates: end: 2009
  8. DURAGESIC [Suspect]
     Indication: PAIN
     Dosage: 50 UG/HR X 3 PATCHES
     Route: 062
     Dates: start: 2009
  9. DURAGESIC [Suspect]
     Indication: PAIN
     Route: 062
  10. DURAGESIC [Suspect]
     Indication: PAIN
     Route: 062
     Dates: end: 2009
  11. DURAGESIC [Suspect]
     Indication: PAIN
     Route: 062
  12. DURAGESIC [Suspect]
     Indication: PAIN
     Route: 062
     Dates: start: 2005

REACTIONS (5)
  - Muscle spasms [Not Recovered/Not Resolved]
  - Nausea [Recovered/Resolved]
  - Pain in extremity [Recovered/Resolved]
  - Back pain [Recovered/Resolved]
  - Drug ineffective [Unknown]
